FAERS Safety Report 17238288 (Version 1)
Quarter: 2020Q1

REPORT INFORMATION
  Report Type: Spontaneous
  Country: US (occurrence: US)
  Receive Date: 20200106
  Receipt Date: 20200106
  Transmission Date: 20200409
  Serious: No
  Sender: FDA-Public Use
  Company Number: US-IBSA PHARMA-TSO-2019-0132

PATIENT
  Sex: Female
  Weight: 58.11 kg

DRUGS (3)
  1. TIROSINT-SOL [Suspect]
     Active Substance: LEVOTHYROXINE SODIUM
     Indication: AUTOIMMUNE THYROIDITIS
     Dosage: 75MCG ONCE DAILY
     Route: 048
     Dates: start: 201910
  2. DEXILANT [Concomitant]
     Active Substance: DEXLANSOPRAZOLE
     Indication: PRODUCT USED FOR UNKNOWN INDICATION
     Route: 048
  3. UNSPECIFIED SUPPLEMENTS [Concomitant]
     Indication: PRODUCT USED FOR UNKNOWN INDICATION
     Route: 048

REACTIONS (7)
  - Headache [Unknown]
  - Sensation of blood flow [Unknown]
  - Balance disorder [Unknown]
  - Palpitations [Unknown]
  - Tachycardia [Unknown]
  - Blood glucose abnormal [Unknown]
  - Nervousness [Unknown]

NARRATIVE: CASE EVENT DATE: 2019
